FAERS Safety Report 4601877-7 (Version None)
Quarter: 2005Q1

REPORT INFORMATION
  Report Type: 
  Country: None (occurrence: None)
  Receive Date: 20050131
  Receipt Date: 20041207
  Transmission Date: 20050727
  Serious: No
  Sender: FDA-Public Use
  Company Number: 200419337US

PATIENT
  Sex: Female

DRUGS (2)
  1. KETEK [Suspect]
  2. DOMPERIDONE [Suspect]

REACTIONS (4)
  - ABDOMINAL PAIN [None]
  - HEART RATE INCREASED [None]
  - MENOMETRORRHAGIA [None]
  - VOMITING [None]
